FAERS Safety Report 7001280-9 (Version None)
Quarter: 2010Q3

REPORT INFORMATION
  Report Type: 
  Country: None (occurrence: None)
  Receive Date: 20100920
  Receipt Date: 20100511
  Transmission Date: 20110219
  Serious: Yes (Other)
  Sender: FDA-Public Use
  Company Number: US-ASTRAZENECA-2010SE03955

PATIENT
  Age: 17786 Day
  Sex: Female

DRUGS (5)
  1. SEROQUEL [Suspect]
     Route: 048
     Dates: start: 20021205
  2. CELEXA [Concomitant]
     Dates: start: 20021001
  3. KLONOPIN [Concomitant]
     Dosage: 0.5 MG TID- QID
     Dates: start: 20021001
  4. PROZAC [Concomitant]
  5. TRAZODONE HCL [Concomitant]
     Dates: start: 20021201

REACTIONS (2)
  - PANCREATITIS [None]
  - TYPE 2 DIABETES MELLITUS [None]
